FAERS Safety Report 4426835-7 (Version None)
Quarter: 2004Q3

REPORT INFORMATION
  Report Type: 
  Country: None (occurrence: None)
  Receive Date: 20040816
  Receipt Date: 20040810
  Transmission Date: 20050211
  Serious: Yes (Hospitalization)
  Sender: FDA-Public Use
  Company Number: FR-GLAXOSMITHKLINE-B0341999A

PATIENT
  Age: 9 Year
  Sex: Male
  Weight: 25 kg

DRUGS (3)
  1. VENTOLIN [Suspect]
     Route: 055
     Dates: end: 20040429
  2. BRICANYL [Concomitant]
  3. PULMICORT [Concomitant]
     Route: 055

REACTIONS (4)
  - DIARRHOEA [None]
  - HYPOKALAEMIA [None]
  - OVERDOSE [None]
  - VOMITING [None]
